FAERS Safety Report 10146529 (Version 1)
Quarter: 2014Q2

REPORT INFORMATION
  Report Type: Spontaneous
  Country: KZ (occurrence: KZ)
  Receive Date: 20140501
  Receipt Date: 20140501
  Transmission Date: 20141212
  Serious: Yes (Other)
  Sender: FDA-Public Use
  Company Number: KZ-B.I. PHARMACEUTICALS,INC./RIDGEFIELD-2014-BI-19320YA

PATIENT
  Age: 75 Year
  Sex: Male
  Weight: 68 kg

DRUGS (1)
  1. TAMSULOSINA [Suspect]
     Indication: BENIGN PROSTATIC HYPERPLASIA
     Dosage: 0.4 MG
     Route: 048
     Dates: start: 20140108

REACTIONS (1)
  - Epididymitis [Not Recovered/Not Resolved]
